FAERS Safety Report 6804323-8 (Version None)
Quarter: 2010Q2

REPORT INFORMATION
  Report Type: 
  Country: None (occurrence: None)
  Receive Date: 20100628
  Receipt Date: 20070306
  Transmission Date: 20101027
  Serious: Yes (Death, Hospitalization)
  Sender: FDA-Public Use
  Company Number: US-PFIZER INC-2007007915

PATIENT
  Age: 52 Year
  Sex: Female
  Weight: 78.2 kg

DRUGS (5)
  1. SUTENT [Suspect]
     Indication: LEIOMYOSARCOMA METASTATIC
     Route: 048
     Dates: start: 20061205, end: 20061218
  2. OXYCODONE HCL [Concomitant]
     Indication: TUMOUR PAIN
     Route: 048
     Dates: start: 20061001, end: 20061229
  3. PROPOXYPHENE [Concomitant]
     Indication: TUMOUR PAIN
     Route: 048
     Dates: start: 20061001, end: 20061229
  4. PROTONIX [Concomitant]
     Indication: DYSPEPSIA
     Route: 048
     Dates: start: 20061001, end: 20061229
  5. MINERAL TAB [Concomitant]
     Dosage: 1 CAPSULE
     Dates: start: 20061001, end: 20061229

REACTIONS (5)
  - ASTHENIA [None]
  - DISEASE PROGRESSION [None]
  - LEIOMYOSARCOMA METASTATIC [None]
  - NAUSEA [None]
  - VOMITING [None]
